FAERS Safety Report 5420268-2 (Version None)
Quarter: 2007Q3

REPORT INFORMATION
  Report Type: 
  Country: None (occurrence: None)
  Receive Date: 20070815
  Receipt Date: 20070806
  Transmission Date: 20080115
  Serious: Yes (Hospitalization)
  Sender: FDA-Public Use
  Company Number: 2007JP003684

PATIENT
  Age: 84 Year
  Sex: Female

DRUGS (9)
  1. VESICARE [Suspect]
     Indication: POLLAKIURIA
     Dosage: 2.5 MG, ORAL; 2.5 MG, ORAL
     Route: 048
     Dates: start: 20070611, end: 20070601
  2. VESICARE [Suspect]
     Indication: POLLAKIURIA
     Dosage: 2.5 MG, ORAL; 2.5 MG, ORAL
     Route: 048
     Dates: start: 20070709, end: 20070803
  3. GRAMALIL (TIAPRIDE HYDROCHLORIDE) TABLET [Concomitant]
  4. BUFFERIN (ALUMINIUM GLYCINATE) TABLET [Concomitant]
  5. EPADEL (ETHYL ICOSAPENTATE) PER ORAL NOS [Concomitant]
  6. IMPROMEN (BROMPERIDOL) TABLET [Concomitant]
  7. ALFAROL (ALFACALCIDOL) CAPSULE [Concomitant]
  8. GEFANIL (GEFARNATE) CAPSULE [Concomitant]
  9. PURSENNID (SENNOSIDE A+B) TABLET [Concomitant]

REACTIONS (3)
  - BLOOD CREATINE PHOSPHOKINASE INCREASED [None]
  - TREMOR [None]
  - WHITE BLOOD CELL COUNT INCREASED [None]
